FAERS Safety Report 15076540 (Version 1)
Quarter: 2018Q2

REPORT INFORMATION
  Report Type: Spontaneous
  Country: ZA (occurrence: ZA)
  Receive Date: 20180627
  Receipt Date: 20180627
  Transmission Date: 20180711
  Serious: Yes (Hospitalization)
  Sender: FDA-Public Use
  Company Number: ZA-PFIZER INC-2018257495

PATIENT
  Age: 47 Year
  Sex: Female

DRUGS (3)
  1. ZYTOMIL [Suspect]
     Active Substance: ESCITALOPRAM OXALATE
     Dosage: 20 MG, UNK
  2. NEURONTIN [Suspect]
     Active Substance: GABAPENTIN
     Dosage: 600 MG, UNK
  3. MACRODANTIN [Suspect]
     Active Substance: NITROFURANTOIN
     Dosage: 100 MG, UNK

REACTIONS (2)
  - Lymphoedema [Unknown]
  - Henoch-Schonlein purpura [Unknown]
